FAERS Safety Report 5334477-4 (Version None)
Quarter: 2007Q2

REPORT INFORMATION
  Report Type: 
  Country: None (occurrence: None)
  Receive Date: 20070525
  Receipt Date: 20070516
  Transmission Date: 20071010
  Serious: Yes (Death, Other)
  Sender: FDA-Public Use
  Company Number: PT-NOVOPROD-261313

PATIENT
  Sex: Female
  Weight: 60 kg

DRUGS (1)
  1. NOVOSEVEN [Suspect]
     Indication: ANAEMIA
     Dosage: 40 UG/KG, UNK

REACTIONS (6)
  - MULTI-ORGAN FAILURE [None]
  - MYOSITIS [None]
  - NECROSIS [None]
  - NECROTISING FASCIITIS FUNGAL [None]
  - SEPTIC SHOCK [None]
  - VENOUS THROMBOSIS LIMB [None]
